FAERS Safety Report 19402790 (Version 1)
Quarter: 2021Q2

REPORT INFORMATION
  Report Type: Spontaneous
  Country: US (occurrence: US)
  Receive Date: 20210610
  Receipt Date: 20210610
  Transmission Date: 20210717
  Serious: Yes (Life-Threatening, Hospitalization)
  Sender: FDA-Public Use
  Company Number: US-TEVA-2021-US-1920145

PATIENT
  Age: 23 Year
  Sex: Male

DRUGS (6)
  1. EPINEPHRINE. [Suspect]
     Active Substance: EPINEPHRINE
     Indication: VASOPLEGIA SYNDROME
     Route: 065
  2. BUPROPION. [Suspect]
     Active Substance: BUPROPION
     Indication: OVERDOSE
     Route: 065
  3. NOREPINEPHRINE. [Suspect]
     Active Substance: NOREPINEPHRINE
     Indication: VASOPLEGIA SYNDROME
     Route: 065
  4. CALCIUM [Concomitant]
     Active Substance: CALCIUM
     Indication: PRODUCT USED FOR UNKNOWN INDICATION
     Route: 065
  5. CITALOPRAM [Suspect]
     Active Substance: CITALOPRAM HYDROBROMIDE
     Indication: OVERDOSE
     Route: 065
  6. SODIUM BICARBONATE. [Concomitant]
     Active Substance: SODIUM BICARBONATE
     Indication: ACIDOSIS
     Route: 065

REACTIONS (8)
  - Seizure [Recovering/Resolving]
  - Overdose [Unknown]
  - Vasoplegia syndrome [Recovering/Resolving]
  - Cardiogenic shock [Recovering/Resolving]
  - Cardiac arrest [Recovered/Resolved]
  - Acidosis [Recovering/Resolving]
  - Arrhythmia [Recovered/Resolved]
  - Drug ineffective [Unknown]
